FAERS Safety Report 4279346-6 (Version None)
Quarter: 2004Q1

REPORT INFORMATION
  Report Type: 
  Country: None (occurrence: None)
  Receive Date: 20040126
  Receipt Date: 20040126
  Transmission Date: 20041129
  Serious: Yes (Other)
  Sender: FDA-Public Use
  Company Number: None

PATIENT
  Age: 64 Year
  Sex: Male
  Weight: 90.7194 kg

DRUGS (11)
  1. AMIODARONE HCL [Suspect]
     Indication: ATRIAL FLUTTER
     Dosage: 200 MG 2 X DAY ORAL
     Route: 048
     Dates: start: 20030412, end: 20030831
  2. AMIODARONE HCL [Suspect]
     Dosage: 400 MG 2 X DAY ORAL
     Route: 048
     Dates: start: 20030901, end: 20031016
  3. AVAPRO [Concomitant]
  4. DILTIAZEM [Concomitant]
  5. CAPTOPRIL [Concomitant]
  6. PLAVIX [Concomitant]
  7. LIPITOR [Concomitant]
  8. GLIPIZIDE [Concomitant]
  9. PRILOSEC [Concomitant]
  10. COUMADIN [Concomitant]
  11. SYNTHROID [Concomitant]

REACTIONS (21)
  - ARTHROPATHY [None]
  - BACK PAIN [None]
  - BALANCE DISORDER [None]
  - CORNEAL DEPOSITS [None]
  - DIZZINESS [None]
  - DRUG INEFFECTIVE [None]
  - DYSGEUSIA [None]
  - DYSKINESIA [None]
  - EAR PAIN [None]
  - FALL [None]
  - FEELING ABNORMAL [None]
  - FLATULENCE [None]
  - HAIR DISORDER [None]
  - INSOMNIA [None]
  - NERVOUS SYSTEM DISORDER [None]
  - ONYCHORRHEXIS [None]
  - PARAESTHESIA [None]
  - SALIVA ALTERED [None]
  - SENSORY DISTURBANCE [None]
  - THYROID DISORDER [None]
  - TINNITUS [None]
